FAERS Safety Report 9895812 (Version 2)
Quarter: 2014Q1

REPORT INFORMATION
  Report Type: Spontaneous
  Country: US (occurrence: US)
  Receive Date: 20140213
  Receipt Date: 20140213
  Transmission Date: 20141002
  Serious: No
  Sender: FDA-Public Use
  Company Number: US-BRISTOL-MYERS SQUIBB COMPANY-19558345

PATIENT
  Age: 56 Year
  Sex: Female
  Weight: 76.19 kg

DRUGS (12)
  1. ABATACEPT SUBQ INJECTION 125MG/ML [Suspect]
     Indication: RHEUMATOID ARTHRITIS
     Dosage: 1DF=125MG/ML
     Route: 058
  2. PREDNISONE [Concomitant]
     Dosage: TABS
  3. VITAMIN B12 [Concomitant]
  4. METHOTREXATE [Concomitant]
  5. FOLIC ACID [Concomitant]
  6. VITAMIN D [Concomitant]
     Dosage: 1DF=1000 UNITS?CAPS
  7. CENTRUM [Concomitant]
  8. FISH OIL [Concomitant]
  9. WELCHOL [Concomitant]
     Dosage: TABS
  10. TYLENOL [Concomitant]
     Dosage: TYLENOL 8?TABS
  11. CALTRATE [Concomitant]
     Dosage: 1DF=600-UNITS NOS
  12. VITAMIN C [Concomitant]
     Dosage: CAPS

REACTIONS (5)
  - Wound [Recovering/Resolving]
  - Back pain [Recovered/Resolved]
  - Nausea [Unknown]
  - Drug dose omission [Unknown]
  - Infection [Unknown]
